FAERS Safety Report 4645626-5 (Version None)
Quarter: 2005Q2

REPORT INFORMATION
  Report Type: 
  Country: None (occurrence: None)
  Receive Date: 20050331
  Receipt Date: 20041210
  Transmission Date: 20051028
  Serious: No
  Sender: FDA-Public Use
  Company Number: 04P-163-0282967-00

PATIENT
  Age: 64 Year
  Sex: Female
  Weight: 67.1324 kg

DRUGS (4)
  1. HUMIRA [Suspect]
     Indication: RHEUMATOID ARTHRITIS
     Dosage: 40 MG, 1 IN 2 WK, SUBCUTANEOUS
     Route: 058
     Dates: start: 20030101, end: 20041201
  2. PREDNISONE [Concomitant]
  3. LEVOTHYROXINE SODIUM [Concomitant]
  4. DICLOFENAC SODIUM [Concomitant]

REACTIONS (3)
  - BLOOD URINE PRESENT [None]
  - NEPHROLITHIASIS [None]
  - URINARY TRACT INFECTION [None]
